FAERS Safety Report 13415965 (Version 1)
Quarter: 2017Q2

REPORT INFORMATION
  Report Type: Spontaneous
  Country: GB (occurrence: GB)
  Receive Date: 20170407
  Receipt Date: 20170407
  Transmission Date: 20170830
  Serious: Yes (Death, Hospitalization, Other)
  Sender: FDA-Public Use
  Company Number: GB-TORRENT-00015147

PATIENT
  Age: 35 Year
  Sex: Female
  Weight: 141 kg

DRUGS (10)
  1. CETIRIZINE [Suspect]
     Active Substance: CETIRIZINE HYDROCHLORIDE
  2. TRIMETHOPRIM. [Suspect]
     Active Substance: TRIMETHOPRIM
  3. ZUCLOPENTHIXOL [Suspect]
     Active Substance: ZUCLOPENTHIXOL
  4. CHLORPHENAMINE [Suspect]
     Active Substance: CHLORPHENIRAMINE MALEATE
  5. LITHIUM CARBONATE. [Suspect]
     Active Substance: LITHIUM CARBONATE
  6. MIDAZOLAM [Suspect]
     Active Substance: MIDAZOLAM HYDROCHLORIDE
  7. FENTANYL. [Suspect]
     Active Substance: FENTANYL
  8. ATRACURIUM [Suspect]
     Active Substance: ATRACURIUM
  9. HYDROXYZINE [Suspect]
     Active Substance: HYDROXYZINE HYDROCHLORIDE
  10. CLOZAPINE. [Suspect]
     Active Substance: CLOZAPINE

REACTIONS (20)
  - Cardiac arrest [Unknown]
  - Bone marrow failure [Fatal]
  - Pneumocystis jirovecii pneumonia [Fatal]
  - Multiple organ dysfunction syndrome [Fatal]
  - Myelodysplastic syndrome [Fatal]
  - Malaise [Unknown]
  - Refusal of treatment by patient [Unknown]
  - Tonsillar hypertrophy [Unknown]
  - Infection [Unknown]
  - Dizziness [Unknown]
  - Acute respiratory distress syndrome [Fatal]
  - Blood urea increased [Unknown]
  - Product use in unapproved indication [Unknown]
  - Agitation [Unknown]
  - Oropharyngeal pain [Unknown]
  - Constipation [Unknown]
  - Neutropenic sepsis [Fatal]
  - Subdural haemorrhage [Unknown]
  - Subarachnoid haemorrhage [Unknown]
  - Inflammation [Unknown]

NARRATIVE: CASE EVENT DATE: 2014
